FAERS Safety Report 11583880 (Version 1)
Quarter: 2015Q4

REPORT INFORMATION
  Report Type: Spontaneous
  Country: US (occurrence: US)
  Receive Date: 20151001
  Receipt Date: 20151001
  Transmission Date: 20160304
  Serious: No
  Sender: FDA-Public Use
  Company Number: US-ROCHE-658315

PATIENT
  Age: 57 Year
  Sex: Male

DRUGS (3)
  1. RIBAVIRIN. [Suspect]
     Active Substance: RIBAVIRIN
     Dosage: DIVIDED DOSES
     Route: 048
  2. PEGASYS [Suspect]
     Active Substance: PEGINTERFERON ALFA-2A
     Indication: HEPATITIS C
     Dosage: FORM: PRE FILLED SYRINGE
     Route: 058
  3. RIBAVIRIN. [Suspect]
     Active Substance: RIBAVIRIN
     Indication: HEPATITIS C
     Dosage: DOSE TAKEN IN DIVIDED DOSES
     Route: 048

REACTIONS (7)
  - Headache [Recovering/Resolving]
  - Red blood cell count decreased [Unknown]
  - Cough [Unknown]
  - Weight decreased [Unknown]
  - Pruritus generalised [Unknown]
  - Insomnia [Unknown]
  - Rash papular [Unknown]

NARRATIVE: CASE EVENT DATE: 200909
